FAERS Safety Report 4309107-0 (Version None)
Quarter: 2004Q1

REPORT INFORMATION
  Report Type: 
  Country: None (occurrence: None)
  Receive Date: 20040227
  Receipt Date: 20040213
  Transmission Date: 20041129
  Serious: Yes (Other)
  Sender: FDA-Public Use
  Company Number: DSA_24013_2004

PATIENT
  Age: 75 Year
  Sex: Female
  Weight: 50 kg

DRUGS (5)
  1. ISORDIL [Suspect]
     Indication: MYOCARDIAL ISCHAEMIA
     Dosage: 10 MG TID PO
     Route: 048
     Dates: start: 20040110, end: 20040125
  2. ISORDIL [Suspect]
     Indication: MYOCARDIAL ISCHAEMIA
     Dates: start: 20040101
  3. CALAN [Suspect]
     Indication: HYPERTENSION
     Dosage: 40 MG TID
     Dates: start: 19840101
  4. CALAN [Suspect]
     Indication: MYOCARDIAL ISCHAEMIA
     Dosage: 40 MG TID
     Dates: start: 19840101
  5. DIGOXIN [Suspect]
     Indication: ARRHYTHMIA
     Dosage: 2.5 MG QD
     Dates: start: 19840101

REACTIONS (4)
  - ARRHYTHMIA [None]
  - ASTHENIA [None]
  - HYPOTENSION [None]
  - PALPITATIONS [None]
